FAERS Safety Report 7340843-8 (Version None)
Quarter: 2011Q1

REPORT INFORMATION
  Report Type: 
  Country: None (occurrence: None)
  Receive Date: 20110228
  Receipt Date: 20110218
  Transmission Date: 20110831
  Serious: Yes (Hospitalization)
  Sender: FDA-Public Use
  Company Number: 027820

PATIENT
  Sex: Male
  Weight: 99.7 kg

DRUGS (7)
  1. METHOTREXATE [Concomitant]
  2. ASPIRIN [Concomitant]
  3. CELEBREX [Concomitant]
  4. FOLIC ACID [Concomitant]
  5. CERTOLIZUMAB PEGOL [Suspect]
     Indication: RHEUMATOID ARTHRITIS
     Dosage: 400 MG, NBR OF DOSES RECEIVED: 3 SUBCUTANEOUS, 200 MG NBR OF DOSES RECEIVED: 2 SUBCUTANEOUS
     Route: 058
     Dates: start: 20110120, end: 20110217
  6. CERTOLIZUMAB PEGOL [Suspect]
     Indication: RHEUMATOID ARTHRITIS
     Dosage: 400 MG, NBR OF DOSES RECEIVED: 3 SUBCUTANEOUS, 200 MG NBR OF DOSES RECEIVED: 2 SUBCUTANEOUS
     Route: 058
     Dates: start: 20101210, end: 20110106
  7. SKELAXIN [Concomitant]

REACTIONS (3)
  - RASH GENERALISED [None]
  - CONDITION AGGRAVATED [None]
  - RHEUMATOID ARTHRITIS [None]
